FAERS Safety Report 23651544 (Version 1)
Quarter: 2024Q1

REPORT INFORMATION
  Report Type: Spontaneous
  Country: IT (occurrence: IT)
  Receive Date: 20240320
  Receipt Date: 20240320
  Transmission Date: 20240410
  Serious: Yes (Other)
  Sender: FDA-Public Use
  Company Number: None

PATIENT
  Age: 57 Year
  Sex: Male

DRUGS (2)
  1. CISPLATIN [Suspect]
     Active Substance: CISPLATIN
     Indication: Bladder cancer
     Dosage: 80 MG EVERY 1ST, 8TH AND 15TH OF EACH 28 DAY CYCLE, CISPLATINO
     Route: 042
     Dates: start: 20240201, end: 20240201
  2. GEMCITABINE [Suspect]
     Active Substance: GEMCITABINE
     Indication: Bladder cancer
     Dosage: 1500 MG EVERY 1ST, 8TH AND 15TH OF EACH 28 DAY CYCLE, GEMCITABINA
     Route: 042
     Dates: start: 20240208, end: 20240208

REACTIONS (2)
  - Neutropenia [Not Recovered/Not Resolved]
  - Asthenia [Not Recovered/Not Resolved]

NARRATIVE: CASE EVENT DATE: 20240222
